FAERS Safety Report 5739884-3 (Version None)
Quarter: 2008Q2

REPORT INFORMATION
  Report Type: 
  Country: None (occurrence: None)
  Receive Date: 20080513
  Receipt Date: 20080512
  Transmission Date: 20081010
  Serious: Yes (Other)
  Sender: FDA-Public Use
  Company Number: 100#08#2008-02568

PATIENT
  Age: 32 Month
  Sex: Male

DRUGS (3)
  1. PHENOBARBITAL TAB [Suspect]
     Indication: CONVULSION
  2. PHENYTOIN [Suspect]
     Indication: CONVULSION
  3. PREDNISOLONE [Concomitant]

REACTIONS (5)
  - DRUG HYPERSENSITIVITY [None]
  - HYPOGAMMAGLOBULINAEMIA [None]
  - LYMPHOCYTE STIMULATION TEST POSITIVE [None]
  - PYREXIA [None]
  - RASH MACULO-PAPULAR [None]
